FAERS Safety Report 15723920 (Version 1)
Quarter: 2018Q4

REPORT INFORMATION
  Report Type: Spontaneous
  Country: KW (occurrence: KW)
  Receive Date: 20181214
  Receipt Date: 20181214
  Transmission Date: 20190205
  Serious: Yes (Hospitalization, Other)
  Sender: FDA-Public Use
  Company Number: KW-ELI_LILLY_AND_COMPANY-KW201811013803

PATIENT
  Age: 64 Year
  Sex: Male
  Weight: 97 kg

DRUGS (11)
  1. VASTAREL [Concomitant]
     Active Substance: TRIMETAZIDINE DIHYDROCHLORIDE
     Indication: PRODUCT USED FOR UNKNOWN INDICATION
     Dosage: 35 MG, UNKNOWN
     Route: 048
  2. ZOCOR [Concomitant]
     Active Substance: SIMVASTATIN
     Indication: PRODUCT USED FOR UNKNOWN INDICATION
     Dosage: 20 MG, UNKNOWN
     Route: 048
  3. DIOVAN [Concomitant]
     Active Substance: VALSARTAN
     Indication: PRODUCT USED FOR UNKNOWN INDICATION
     Dosage: 80 MG, UNKNOWN
     Route: 048
  4. WARFARIN [Concomitant]
     Active Substance: WARFARIN
     Indication: PRODUCT USED FOR UNKNOWN INDICATION
     Dosage: 5.5 MG, UNKNOWN
     Route: 048
  5. ERBITUX [Suspect]
     Active Substance: CETUXIMAB
     Dosage: 200 MG/M2, WEEKLY (1/W)
     Route: 042
     Dates: start: 201810
  6. PLAVIX [Concomitant]
     Active Substance: CLOPIDOGREL BISULFATE
     Indication: PRODUCT USED FOR UNKNOWN INDICATION
     Dosage: 75 MG, UNKNOWN
     Route: 048
  7. DIGOXIN. [Concomitant]
     Active Substance: DIGOXIN
     Indication: PRODUCT USED FOR UNKNOWN INDICATION
     Dosage: .135 MG, UNK
     Route: 048
  8. FUROSEMIDE. [Concomitant]
     Active Substance: FUROSEMIDE
     Indication: PRODUCT USED FOR UNKNOWN INDICATION
     Dosage: 40 MG, UNKNOWN
     Route: 048
  9. GLUCOPHAGE [Concomitant]
     Active Substance: METFORMIN HYDROCHLORIDE
     Indication: PRODUCT USED FOR UNKNOWN INDICATION
     Dosage: 1 G, UNKNOWN
     Route: 048
  10. ERBITUX [Suspect]
     Active Substance: CETUXIMAB
     Indication: SKIN CANCER
     Dosage: 450 MG/M2, UNKNOWN
     Route: 042
     Dates: start: 20181021
  11. CONCOR [Concomitant]
     Active Substance: BISOPROLOL FUMARATE
     Indication: PRODUCT USED FOR UNKNOWN INDICATION
     Dosage: 7.5 MG, UNKNOWN
     Route: 048

REACTIONS (3)
  - Off label use [Unknown]
  - Cellulitis [Recovering/Resolving]
  - Oedema peripheral [Unknown]

NARRATIVE: CASE EVENT DATE: 2018
